FAERS Safety Report 4897048-X (Version None)
Quarter: 2005Q4

REPORT INFORMATION
  Report Type: 
  Country: None (occurrence: None)
  Receive Date: 20051228
  Receipt Date: 20050317
  Transmission Date: 20060501
  Serious: Yes (Hospitalization, Other)
  Sender: FDA-Public Use
  Company Number: US_010259760

PATIENT
  Age: 41 Year
  Sex: Male
  Weight: 61 kg

DRUGS (6)
  1. LENTE ILETIN II (PORK) [Suspect]
     Indication: DIABETES MELLITUS
     Dosage: 14 U IN THE MORNING
  2. ILETIN I [Suspect]
     Indication: DIABETES MELLITUS
     Dosage: 13 U DAY
  3. ILETIN [Suspect]
     Indication: DIABETES MELLITUS
     Dates: start: 19820101
  4. HUMULIN L [Suspect]
     Indication: DIABETES MELLITUS
     Dates: start: 19870101
  5. HUMULIN R [Suspect]
     Indication: DIABETES MELLITUS
     Dates: start: 19870101
  6. HUMULIN R [Suspect]

REACTIONS (11)
  - ACOUSTIC NEUROMA [None]
  - BALANCE DISORDER [None]
  - BLOOD GLUCOSE [None]
  - BLOOD GLUCOSE DECREASED [None]
  - BLOOD GLUCOSE INCREASED [None]
  - DEAFNESS UNILATERAL [None]
  - FEELING ABNORMAL [None]
  - NERVE INJURY [None]
  - RASH [None]
  - ROAD TRAFFIC ACCIDENT [None]
  - SPEECH DISORDER [None]
